FAERS Safety Report 17416826 (Version 2)
Quarter: 2020Q1

REPORT INFORMATION
  Report Type: Spontaneous
  Country: DE (occurrence: DE)
  Receive Date: 20200214
  Receipt Date: 20200218
  Transmission Date: 20200409
  Serious: Yes (Hospitalization, Other)
  Sender: FDA-Public Use
  Company Number: DE-EMD SERONO-E2B_90074808

PATIENT
  Age: 42 Year
  Sex: Female

DRUGS (4)
  1. ORGALUTRAN [Suspect]
     Active Substance: GANIRELIX ACETATE
     Indication: PRODUCT USED FOR UNKNOWN INDICATION
     Dates: start: 20191113, end: 20191116
  2. OVITRELLE [Suspect]
     Active Substance: CHORIOGONADOTROPIN ALFA
     Indication: ASSISTED REPRODUCTIVE TECHNOLOGY
     Dates: start: 20191116
  3. CLOMIFEN [Suspect]
     Active Substance: CLOMIPHENE
     Indication: ASSISTED REPRODUCTIVE TECHNOLOGY
     Dosage: 3 X 50 MG
     Dates: start: 20191109, end: 20191113
  4. MENOGON HP [Suspect]
     Active Substance: MENOTROPINS
     Indication: ASSISTED REPRODUCTIVE TECHNOLOGY
     Dosage: FORM STRENGTH: 300 IE
     Dates: start: 20191109, end: 20191115

REACTIONS (2)
  - Intra-abdominal haemorrhage [Recovered/Resolved]
  - Haemorrhage [Recovered/Resolved]

NARRATIVE: CASE EVENT DATE: 20191119
